FAERS Safety Report 23492277 (Version 2)
Quarter: 2025Q1

REPORT INFORMATION
  Report Type: Report from Study
  Country: US (occurrence: US)
  Receive Date: 20240207
  Receipt Date: 20250115
  Transmission Date: 20250409
  Serious: No
  Sender: HRA PHARMA
  Company Number: US-ORG100014127-2023000949

PATIENT
  Age: 80 Year
  Sex: Female

DRUGS (31)
  1. LYSODREN [Suspect]
     Active Substance: MITOTANE
     Indication: Adrenal gland cancer
     Dosage: 2000MG BY MOUTH 3 TIMES DAILY
     Route: 048
     Dates: start: 20230408
  2. LYSODREN [Suspect]
     Active Substance: MITOTANE
     Indication: Adrenal gland cancer
     Dosage: 2500MG BY MOUTH 3 TIMES DAILY
     Route: 048
  3. LYSODREN [Suspect]
     Active Substance: MITOTANE
     Indication: Adrenal gland cancer
     Dosage: 3 TABLETS IN THE MORNING, 3 TABLETS AT LUNCH, 4 TABLETS IN THE VENING
     Route: 048
  4. LYSODREN [Suspect]
     Active Substance: MITOTANE
     Indication: Adrenal gland cancer
     Dosage: 2 TABLET AT THE LUNCH AND 2 AT THE TIME OF DINNER
     Route: 048
  5. LYSODREN [Suspect]
     Active Substance: MITOTANE
     Indication: Adrenal gland cancer
     Dosage: 1 TAB 3 TIMES A DAY (WITH FATTY FOOD)
     Route: 048
  6. ACETAMIN TAB 500MG [Concomitant]
     Indication: Product used for unknown indication
  7. AMLODIPINE [Concomitant]
     Active Substance: AMLODIPINE BESYLATE
     Indication: Product used for unknown indication
  8. ASPIRIN LOW CHW 81MG [Concomitant]
     Indication: Product used for unknown indication
  9. CARVEDILOL [Concomitant]
     Active Substance: CARVEDILOL
     Indication: Product used for unknown indication
  10. ELIQUIS [Concomitant]
     Active Substance: APIXABAN
     Indication: Product used for unknown indication
  11. EZETIMIBE [Concomitant]
     Active Substance: EZETIMIBE
     Indication: Product used for unknown indication
  12. FEXOFENADINE TAB 180MG [Concomitant]
     Indication: Product used for unknown indication
  13. HYDROCHLOROTHIAZIDE [Concomitant]
     Active Substance: HYDROCHLOROTHIAZIDE
     Indication: Product used for unknown indication
  14. ACETAMINOPHEN\HYDROCODONE [Concomitant]
     Active Substance: ACETAMINOPHEN\HYDROCODONE
     Indication: Product used for unknown indication
  15. HYDROCORT TAB 10MG [Concomitant]
     Indication: Product used for unknown indication
  16. PIOGLITAZONE TAB 15MG [Concomitant]
     Indication: Product used for unknown indication
  17. MINERALS\VITAMINS [Concomitant]
     Active Substance: MINERALS\VITAMINS
     Indication: Product used for unknown indication
  18. ROSUVASTATIN [Concomitant]
     Active Substance: ROSUVASTATIN
     Indication: Product used for unknown indication
  19. SYNTHROID TAB 125MCG [Concomitant]
     Indication: Product used for unknown indication
  20. VALSARTAN [Concomitant]
     Active Substance: VALSARTAN
     Indication: Product used for unknown indication
  21. ICAPS AREDS TAB FORMULA [Concomitant]
     Indication: Product used for unknown indication
  22. MIRALAX POW 3350 NF [Concomitant]
     Indication: Product used for unknown indication
  23. VITAMIN B-12 TAB 250MCG [Concomitant]
     Indication: Product used for unknown indication
  24. VITAMIN D TAB 400UNIT [Concomitant]
     Indication: Product used for unknown indication
  25. CALCIUM/D TAB 600-400 [Concomitant]
     Indication: Product used for unknown indication
  26. OMEGA-3-6-9 CAP; [Concomitant]
     Indication: Product used for unknown indication
  27. PEPCID AC TAB 20MG [Concomitant]
     Indication: Product used for unknown indication
  28. CARVEDILOL TAB 12.5MG [Concomitant]
     Indication: Product used for unknown indication
  29. HYDRALAZINE [Concomitant]
     Active Substance: HYDRALAZINE HYDROCHLORIDE
     Indication: Product used for unknown indication
  30. HYDROCHLOROT TAB 12.5 MG [Concomitant]
     Indication: Product used for unknown indication
  31. PREDNISONE [Concomitant]
     Active Substance: PREDNISONE
     Indication: Product used for unknown indication

REACTIONS (3)
  - Adverse event [Unknown]
  - Fatigue [Not Recovered/Not Resolved]
  - Wrong technique in product usage process [Unknown]

NARRATIVE: CASE EVENT DATE: 20230408
